FAERS Safety Report 9300762 (Version 2)
Quarter: 2013Q3

REPORT INFORMATION
  Report Type: Spontaneous
  Country: US (occurrence: US)
  Receive Date: 20130521
  Receipt Date: 20130806
  Transmission Date: 20140515
  Serious: No
  Sender: FDA-Public Use
  Company Number: US-JNJFOC-20130506428

PATIENT
  Age: 79 Year
  Sex: Male
  Weight: 88.91 kg

DRUGS (38)
  1. XARELTO [Suspect]
     Indication: PRODUCT USED FOR UNKNOWN INDICATION
     Dosage: 1 AT BEDTIME (1 QHS)
     Route: 048
     Dates: start: 201210, end: 20130414
  2. ASPIRIN [Suspect]
     Indication: PRODUCT USED FOR UNKNOWN INDICATION
     Route: 048
  3. INSULIN [Concomitant]
     Indication: PRODUCT USED FOR UNKNOWN INDICATION
     Dosage: DOSE: 16 UNITS BOTH MORNING AND NIGHT
     Route: 065
  4. INSULIN [Concomitant]
     Indication: PRODUCT USED FOR UNKNOWN INDICATION
     Dosage: DOSE: 20 UNITS IN THE MORNING AND 18 UNITS IN THE NIGHT
     Route: 065
  5. INSULIN [Concomitant]
     Indication: PRODUCT USED FOR UNKNOWN INDICATION
     Dosage: DOSE: 22 UNITS IN THE MORNING AND 20 UNITS IN THE NIGHT
     Route: 065
  6. INSULIN [Concomitant]
     Indication: PRODUCT USED FOR UNKNOWN INDICATION
     Dosage: DOSE: 18 UNITS BOTH MORNING AND NIGHT
     Route: 065
  7. GLUCOSAMINE/MSM [Concomitant]
     Route: 048
  8. DIGOXIN [Concomitant]
     Route: 048
  9. FISH OIL [Concomitant]
     Route: 048
  10. VITAMINS AND MINERALS [Concomitant]
     Route: 048
  11. MECLIZINE [Concomitant]
     Indication: VERTIGO
     Route: 065
  12. FLONASE [Concomitant]
     Dosage: 50 MCG/ACTUATION SPRAY AS NEEDED
     Route: 065
  13. HUMULIN N [Concomitant]
     Dosage: 100 UNIT/ML TAKE AS DIRECTED
     Route: 065
  14. CAPRYLIC ACID [Concomitant]
     Indication: TREMOR
     Dosage: 6 CAPSULES ONCE IN THE MORNING
     Route: 065
  15. NITROSTAT [Concomitant]
     Dosage: TAKEN AS DIRECTED
     Route: 060
  16. AMMONIUM LACTATE [Concomitant]
     Dosage: TAKEN AS DIRECTED
     Route: 065
  17. CICLOPIROX [Concomitant]
     Dosage: AS NEEDED
     Route: 065
  18. CARBOXYMETHYLCELLULOSE SODIUM [Concomitant]
     Dosage: AS NEEDED
     Route: 065
  19. VITAMIN D3 [Concomitant]
     Dosage: 1000 UNIT TABLET
     Route: 048
  20. COLLAGENASE SANTYL [Concomitant]
     Dosage: 250 UNIT/ GRAM, TAKEN AS DIRECTED
     Route: 065
  21. VITAMIN C [Concomitant]
     Route: 048
  22. FLUTICASONE [Concomitant]
     Dosage: APPLY 2-3 TIMES DAILY
     Route: 065
  23. COENZYME Q10 [Concomitant]
     Route: 048
  24. TAMSULOSIN [Concomitant]
     Route: 048
  25. ISOSORBIDE MONONITRATE [Concomitant]
     Route: 048
  26. LIPITOR [Concomitant]
     Route: 048
  27. LISINOPRIL [Concomitant]
     Route: 048
  28. ZETIA [Concomitant]
     Route: 048
  29. LASIX [Concomitant]
     Dosage: 1 AND 1/2 TABLET TWO TIMES A DAY
     Route: 048
  30. COREG [Concomitant]
     Route: 048
  31. GLUCOSAMINE [Concomitant]
  32. CHONDROITIN [Concomitant]
     Route: 065
  33. COLLAGEN [Concomitant]
     Dosage: 2 TABLETS ONCE IN MORNING (2 T Q AM)
     Route: 065
  34. POTASSIUM CHLORIDE [Concomitant]
     Dosage: ONCE WITH LUNCH
     Route: 048
  35. POTASSIUM CHLORIDE [Concomitant]
     Dosage: ONCE IN MORNING (Q AM)
     Route: 048
  36. POTASSIUM CHLORIDE [Concomitant]
     Dosage: ONCE WITH DINNER
     Route: 048
  37. METHYLSULFONYLMETHANE [Concomitant]
     Route: 065
  38. WARFARIN [Concomitant]
     Dosage: TAKE AS DIRECTED 1-2 TABLETS DAILY
     Route: 065

REACTIONS (1)
  - Blood glucose increased [Recovered/Resolved]
